FAERS Safety Report 14606715 (Version 1)
Quarter: 2018Q1

REPORT INFORMATION
  Report Type: Spontaneous
  Country: US (occurrence: US)
  Receive Date: 20180307
  Receipt Date: 20180307
  Transmission Date: 20180509
  Serious: Yes (Other)
  Sender: FDA-Public Use
  Company Number: US-009507513-1803USA000307

PATIENT
  Sex: Female

DRUGS (1)
  1. DULERA [Suspect]
     Active Substance: FORMOTEROL FUMARATE DIHYDRATE\MOMETASONE FUROATE
     Indication: ASTHMA
     Dosage: UNK, ROUTE:^INHALED^
     Route: 055

REACTIONS (5)
  - Sinus operation [Unknown]
  - Dyspnoea [Unknown]
  - Retinal artery occlusion [Unknown]
  - Drug dose omission [Unknown]
  - Product availability issue [Unknown]
